FAERS Safety Report 6564727-8 (Version None)
Quarter: 2010Q1

REPORT INFORMATION
  Report Type: 
  Country: None (occurrence: None)
  Receive Date: 20100201
  Receipt Date: 20100127
  Transmission Date: 20100710
  Serious: Yes (Life-Threatening)
  Sender: FDA-Public Use
  Company Number: US-ASTRAZENECA-2009SE20012

PATIENT
  Age: 934 Month
  Sex: Female
  Weight: 62.1 kg

DRUGS (3)
  1. SYMBICORT [Suspect]
     Indication: CHRONIC OBSTRUCTIVE PULMONARY DISEASE
     Dosage: 160/4.5 MCG 2 PUFFS
     Route: 055
     Dates: start: 20071013
  2. SYMBICORT [Suspect]
     Indication: ASTHMA
     Dosage: 160/4.5 MCG 2 PUFFS
     Route: 055
     Dates: start: 20071013
  3. SYMBICORT [Suspect]
     Indication: BRONCHIECTASIS
     Dosage: 160/4.5 MCG 2 PUFFS
     Route: 055
     Dates: start: 20071013

REACTIONS (2)
  - LUNG NEOPLASM MALIGNANT [None]
  - PNEUMONIA [None]
